FAERS Safety Report 20860139 (Version 7)
Quarter: 2023Q1

REPORT INFORMATION
  Report Type: Report from Study
  Country: US (occurrence: None)
  Receive Date: 20220523
  Receipt Date: 20230316
  Transmission Date: 20230417
  Serious: Yes (Death, Hospitalization)
  Sender: FDA-Public Use
  Company Number: US-ROCHE-3086595

PATIENT
  Age: 55 Year
  Sex: Female
  Weight: 71.65 kg

DRUGS (4)
  1. ATEZOLIZUMAB [Suspect]
     Active Substance: ATEZOLIZUMAB
     Indication: Ovarian cancer
     Route: 041
     Dates: start: 20220411, end: 20220411
  2. ATEZOLIZUMAB [Suspect]
     Active Substance: ATEZOLIZUMAB
     Dosage: CYCLE 2
     Route: 041
     Dates: start: 20220502, end: 20220502
  3. TJ-004309 [Suspect]
     Active Substance: TJ-004309
     Indication: Ovarian cancer
     Dosage: 50 MILLIGRAM PER MILLILITRE
     Route: 042
     Dates: start: 20220411, end: 20220411
  4. TJ-004309 [Suspect]
     Active Substance: TJ-004309
     Dosage: 50 MILLIGRAM PER MILLILITRE?CYCLE 2
     Route: 042
     Dates: start: 20220502, end: 20220502

REACTIONS (3)
  - Small intestinal obstruction [Recovering/Resolving]
  - Abdominal pain [Recovered/Resolved with Sequelae]
  - Malignant neoplasm progression [Fatal]

NARRATIVE: CASE EVENT DATE: 20220417
